FAERS Safety Report 17392752 (Version 1)
Quarter: 2020Q1

REPORT INFORMATION
  Report Type: Spontaneous
  Country: US (occurrence: US)
  Receive Date: 20200207
  Receipt Date: 20200207
  Transmission Date: 20200409
  Serious: No
  Sender: FDA-Public Use
  Company Number: US-MYLANLABS-2020M1010967

PATIENT
  Sex: Male
  Weight: 107 kg

DRUGS (1)
  1. SILDENAFIL TABLETS [Suspect]
     Active Substance: SILDENAFIL
     Indication: ERECTILE DYSFUNCTION
     Dosage: 20 MILLIGRAM, PRN
     Route: 048

REACTIONS (3)
  - Extra dose administered [Unknown]
  - Therapeutic product effect decreased [Unknown]
  - Off label use [Unknown]
